FAERS Safety Report 21434800 (Version 2)
Quarter: 2022Q4

REPORT INFORMATION
  Report Type: Spontaneous
  Country: US (occurrence: US)
  Receive Date: 20221010
  Receipt Date: 20221226
  Transmission Date: 20230113
  Serious: No
  Sender: FDA-Public Use
  Company Number: US-SA-SAC20220906000545

PATIENT
  Age: 39 Year
  Sex: Female

DRUGS (1)
  1. DUPIXENT [Suspect]
     Active Substance: DUPILUMAB
     Indication: Conjunctivitis allergic
     Dosage: 300 MG, QOW
     Route: 058
     Dates: start: 20220527

REACTIONS (5)
  - Impaired quality of life [Not Recovered/Not Resolved]
  - Sleep disorder [Unknown]
  - Asthma [Not Recovered/Not Resolved]
  - Conjunctivitis allergic [Unknown]
  - Drug ineffective for unapproved indication [Unknown]

NARRATIVE: CASE EVENT DATE: 20220101
